FAERS Safety Report 7030114-1 (Version None)
Quarter: 2010Q4

REPORT INFORMATION
  Report Type: 
  Country: None (occurrence: None)
  Receive Date: 20101006
  Receipt Date: 20100927
  Transmission Date: 20110411
  Serious: Yes (Hospitalization, Other)
  Sender: FDA-Public Use
  Company Number: CA-PFIZER INC-2010066810

PATIENT
  Age: 49 Year
  Sex: Female
  Weight: 73.5 kg

DRUGS (6)
  1. SUNITINIB MALATE [Suspect]
     Indication: METASTASES TO CENTRAL NERVOUS SYSTEM
     Dosage: 25 MG, 1X/DAY
     Route: 048
     Dates: start: 20100512, end: 20100520
  2. ACETAMINOPHEN [Concomitant]
     Indication: PAIN
     Dosage: 2 TABLETS OF 500 MG THREE TIMES A DAY AS NEEDED
     Route: 048
     Dates: start: 20100426
  3. AMLODIPINE BESILATE [Concomitant]
     Indication: HYPERTENSION
     Dosage: 5 MG, 1X/DAY
     Route: 048
     Dates: start: 20100512
  4. AMOXICILLIN [Concomitant]
     Indication: INFECTION
     Dosage: 500 MG, 4X/DAY FOR 7 DAYS
     Route: 048
     Dates: start: 20100521
  5. ATIVAN [Concomitant]
     Indication: ANXIETY
     Dosage: 1 MG, 3X/DAY IF NEEDED
     Route: 060
     Dates: start: 20100521
  6. CODEINE [Concomitant]
     Indication: PAIN
     Dosage: 3-6 CC (5MG/ML), EVERY 4 HRS
     Route: 048
     Dates: start: 20100521

REACTIONS (1)
  - PERICARDITIS [None]
